FAERS Safety Report 9086899 (Version 1)
Quarter: 2013Q1

REPORT INFORMATION
  Report Type: Report from Study
  Country: US (occurrence: US)
  Receive Date: 20130131
  Receipt Date: 20130131
  Transmission Date: 20140127
  Serious: No
  Sender: FDA-Public Use
  Company Number: US-ABBOTT-12P-163-0992940-00

PATIENT
  Age: 70 Year
  Sex: Male

DRUGS (10)
  1. HUMIRA [Suspect]
     Indication: CROHN^S DISEASE
     Dates: start: 201206
  2. VERELAN [Concomitant]
     Indication: VENTRICULAR EXTRASYSTOLES
     Dosage: 200 MG DAILY
  3. MESALAMINE [Concomitant]
     Indication: CROHN^S DISEASE
     Dosage: AS NEEDED; USUALLY DOES ONCE AT NIGHT
  4. CANASA [Concomitant]
     Indication: CROHN^S DISEASE
     Dosage: AT NIGHT
  5. SULFASALAZINE [Concomitant]
     Indication: CROHN^S DISEASE
     Dosage: 2 PILLS IN THE A.M. AND 2 IN THE P.M.
  6. SLO MAGNESIUM OVER THE COUNTER [Concomitant]
     Indication: CARDIAC DISORDER
  7. POTASSIUM [Concomitant]
     Indication: CARDIAC DISORDER
     Dosage: 20 MEG 1/2 IN A.M. AND 1/2 IN P.M.
  8. ASPIRIN [Concomitant]
     Indication: CARDIAC DISORDER
     Dosage: 81 MG DAILY
  9. XOPENEX [Concomitant]
     Indication: ASTHMA
  10. PRO AIR [Concomitant]
     Indication: PRODUCT USED FOR UNKNOWN INDICATION
     Dosage: POSSIBLY A RESCUE ONE; USED AS NEEDED

REACTIONS (5)
  - Device malfunction [Unknown]
  - Injection site pain [Not Recovered/Not Resolved]
  - Injection site haemorrhage [Not Recovered/Not Resolved]
  - Condition aggravated [Unknown]
  - Incorrect dose administered [Unknown]
